FAERS Safety Report 7412334-7 (Version None)
Quarter: 2011Q2

REPORT INFORMATION
  Report Type: 
  Country: None (occurrence: None)
  Receive Date: 20110413
  Receipt Date: 20110324
  Transmission Date: 20111010
  Serious: No
  Sender: FDA-Public Use
  Company Number: US-B.I. PHARMACEUTICALS,INC./RIDGEFIELD-2011-BP-09106BP

PATIENT
  Sex: Female

DRUGS (2)
  1. LOTREL [Concomitant]
     Indication: HYPERTENSION
     Route: 048
     Dates: start: 20070101
  2. SPIRIVA [Suspect]
     Indication: CHRONIC OBSTRUCTIVE PULMONARY DISEASE
     Dosage: 18 MCG
     Route: 055
     Dates: start: 20101001

REACTIONS (3)
  - SWOLLEN TONGUE [None]
  - LIP SWELLING [None]
  - SENSATION OF FOREIGN BODY [None]
